FAERS Safety Report 24083500 (Version 1)
Quarter: 2024Q3

REPORT INFORMATION
  Report Type: Spontaneous
  Country: US (occurrence: US)
  Receive Date: 20240712
  Receipt Date: 20240712
  Transmission Date: 20241017
  Serious: Yes (Other)
  Sender: STRIDES
  Company Number: US-STRIDES ARCOLAB LIMITED-2024SP008391

PATIENT

DRUGS (8)
  1. PREDNISOLONE [Suspect]
     Active Substance: PREDNISOLONE
     Indication: Anaplastic large cell lymphoma T- and null-cell types
     Dosage: UNK, CYCLICAL (ADMINISTERED 6 CYCLES OF TREATMENT)
     Route: 065
  2. PREDNISOLONE [Suspect]
     Active Substance: PREDNISOLONE
     Indication: Cutaneous lymphoma
  3. DOXORUBICIN [Suspect]
     Active Substance: DOXORUBICIN
     Indication: Anaplastic large cell lymphoma T- and null-cell types
     Dosage: UNK, CYCLICAL (ADMINISTERED 6 CYCLES OF TREATMENT)
     Route: 065
  4. DOXORUBICIN [Suspect]
     Active Substance: DOXORUBICIN
     Indication: Cutaneous lymphoma
  5. BRENTUXIMAB VEDOTIN [Suspect]
     Active Substance: BRENTUXIMAB VEDOTIN
     Indication: Anaplastic large cell lymphoma T- and null-cell types
     Dosage: UNK, CYCLICAL (ADMINISTERED 6 CYCLES OF TREATMENT)
     Route: 065
  6. BRENTUXIMAB VEDOTIN [Suspect]
     Active Substance: BRENTUXIMAB VEDOTIN
     Indication: Cutaneous lymphoma
  7. CYCLOPHOSPHAMIDE [Suspect]
     Active Substance: CYCLOPHOSPHAMIDE
     Indication: Anaplastic large cell lymphoma T- and null-cell types
     Dosage: UNK, CYCLICAL (ADMINISTERED 6 CYCLES OF TREATMENT)
     Route: 065
  8. CYCLOPHOSPHAMIDE [Suspect]
     Active Substance: CYCLOPHOSPHAMIDE
     Indication: Cutaneous lymphoma

REACTIONS (4)
  - Neuropathy peripheral [Unknown]
  - Weight decreased [Unknown]
  - Fatigue [Unknown]
  - Diarrhoea [Unknown]
